FAERS Safety Report 8299318-4 (Version None)
Quarter: 2012Q2

REPORT INFORMATION
  Report Type: 
  Country: None (occurrence: None)
  Receive Date: 20120419
  Receipt Date: 20120410
  Transmission Date: 20120825
  Serious: Yes (Hospitalization, Other)
  Sender: FDA-Public Use
  Company Number: US-ABBOTT-12P-163-0924504-00

PATIENT
  Sex: Male
  Weight: 95.34 kg

DRUGS (8)
  1. LIPITOR [Suspect]
     Indication: HIGH DENSITY LIPOPROTEIN INCREASED
  2. LISINOPRIL [Suspect]
     Indication: HYPERTENSION
  3. PLAVIX [Concomitant]
     Indication: THROMBOSIS PROPHYLAXIS
  4. NIASPAN [Suspect]
     Indication: HIGH DENSITY LIPOPROTEIN ABNORMAL
     Dates: start: 20090101
  5. COREG [Suspect]
     Indication: HYPERTENSION
  6. METFORMIN HCL [Concomitant]
     Indication: DIABETES MELLITUS
     Route: 048
  7. PLAVIX [Concomitant]
     Indication: STENT PLACEMENT
  8. LIPITOR [Suspect]
     Indication: BLOOD CHOLESTEROL INCREASED

REACTIONS (7)
  - CORONARY ARTERY BYPASS [None]
  - PRURITUS [None]
  - SWELLING FACE [None]
  - HYPERTENSION [None]
  - ERYTHEMA [None]
  - RASH [None]
  - FLUSHING [None]
